FAERS Safety Report 7273784-5 (Version None)
Quarter: 2011Q1

REPORT INFORMATION
  Report Type: 
  Country: None (occurrence: None)
  Receive Date: 20110203
  Receipt Date: 20110202
  Transmission Date: 20110831
  Serious: Yes (Other)
  Sender: FDA-Public Use
  Company Number: CN-PFIZER INC-2010177961

PATIENT
  Age: 43 Year
  Sex: Male

DRUGS (2)
  1. ALCOHOL [Suspect]
     Route: 048
  2. CEFOPERAZONE SODIUM AND SULBACTAM SODIUM [Suspect]
     Dosage: UNK
     Route: 042
     Dates: start: 20080101

REACTIONS (2)
  - ALCOHOL INTOLERANCE [None]
  - SHOCK [None]
